FAERS Safety Report 16425697 (Version 2)
Quarter: 2019Q3

REPORT INFORMATION
  Report Type: Spontaneous
  Country: US (occurrence: US)
  Receive Date: 20190613
  Receipt Date: 20190805
  Transmission Date: 20191004
  Serious: No
  Sender: FDA-Public Use
  Company Number: US-PFIZER INC-2019249847

PATIENT
  Age: 50 Year
  Sex: Female

DRUGS (2)
  1. LEVOXYL [Suspect]
     Active Substance: LEVOTHYROXINE SODIUM
     Indication: HYPOTHYROIDISM
     Dosage: 0.12 MG, UNK
     Route: 048
     Dates: start: 201902
  2. PANTOPRAZOLE [Concomitant]
     Active Substance: PANTOPRAZOLE
     Dosage: 40 MG, 1X/DAY
     Route: 048

REACTIONS (7)
  - Malaise [Unknown]
  - Weight decreased [Unknown]
  - Cough [Unknown]
  - Feeling abnormal [Unknown]
  - Intentional product misuse [Unknown]
  - Sputum increased [Unknown]
  - Oropharyngeal discomfort [Unknown]
